FAERS Safety Report 4851222-7 (Version None)
Quarter: 2005Q4

REPORT INFORMATION
  Report Type: 
  Country: None (occurrence: None)
  Receive Date: 20051212
  Receipt Date: 20051201
  Transmission Date: 20060501
  Serious: Yes (Other)
  Sender: FDA-Public Use
  Company Number: US-JNJFOC-20051200937

PATIENT
  Sex: Female

DRUGS (20)
  1. INFLIXIMAB [Suspect]
     Indication: RHEUMATOID ARTHRITIS
     Route: 042
  2. ASPIRIN [Concomitant]
  3. CELEBREX [Concomitant]
  4. LASIX [Concomitant]
  5. POTASSIUM [Concomitant]
  6. METHOTREXATE [Concomitant]
  7. LORTAB [Concomitant]
  8. LORTAB [Concomitant]
  9. MULTI-VITAMIN [Concomitant]
  10. MULTI-VITAMIN [Concomitant]
  11. MULTI-VITAMIN [Concomitant]
  12. MULTI-VITAMIN [Concomitant]
  13. MULTI-VITAMIN [Concomitant]
  14. MULTI-VITAMIN [Concomitant]
  15. MULTI-VITAMIN [Concomitant]
  16. MULTI-VITAMIN [Concomitant]
  17. PREDNISONE [Concomitant]
  18. TYLENOL [Concomitant]
  19. ACTONEL [Concomitant]
  20. CALCIUM GLUCONATE [Concomitant]

REACTIONS (1)
  - BASAL CELL CARCINOMA [None]
